FAERS Safety Report 14155556 (Version 1)
Quarter: 2017Q4

REPORT INFORMATION
  Report Type: Spontaneous
  Country: US (occurrence: US)
  Receive Date: 20171103
  Receipt Date: 20171103
  Transmission Date: 20180321
  Serious: Yes (Hospitalization)
  Sender: FDA-Public Use
  Company Number: US-NAPPMUNDI-USA-2017-0141435

PATIENT
  Sex: Female

DRUGS (2)
  1. DOCUSATE SODIUM. [Suspect]
     Active Substance: DOCUSATE SODIUM
     Indication: UNEVALUABLE THERAPY
     Dosage: 200 MG, BID
     Route: 048
  2. SENNOSIDES. [Suspect]
     Active Substance: SENNOSIDES
     Indication: UNEVALUABLE THERAPY
     Dosage: 17.2 MG, DAILY
     Route: 048

REACTIONS (1)
  - Diarrhoea [Recovered/Resolved]
